FAERS Safety Report 6532192-2 (Version None)
Quarter: 2010Q1

REPORT INFORMATION
  Report Type: 
  Country: None (occurrence: None)
  Receive Date: 20100107
  Receipt Date: 20100107
  Transmission Date: 20100710
  Serious: Yes (Life-Threatening, Other)
  Sender: FDA-Public Use
  Company Number: None

PATIENT
  Age: 40 Year
  Sex: Female
  Weight: 68.0396 kg

DRUGS (1)
  1. LYRICA [Suspect]
     Indication: PAIN
     Dosage: 1 TABLET 3X A DAY PO
     Route: 048
     Dates: start: 20070429, end: 20091118

REACTIONS (18)
  - COMPULSIVE SHOPPING [None]
  - CONFUSIONAL STATE [None]
  - DIVORCED [None]
  - DYSPHEMIA [None]
  - ECONOMIC PROBLEM [None]
  - EMOTIONAL DISORDER [None]
  - FAECAL INCONTINENCE [None]
  - FEELING ABNORMAL [None]
  - HYPERSOMNIA [None]
  - IMPAIRED DRIVING ABILITY [None]
  - INCOHERENT [None]
  - MEMORY IMPAIRMENT [None]
  - MENTAL DISORDER [None]
  - OEDEMA PERIPHERAL [None]
  - SUDDEN ONSET OF SLEEP [None]
  - VISUAL ACUITY REDUCED [None]
  - VISUAL IMPAIRMENT [None]
  - WEIGHT DECREASED [None]
